FAERS Safety Report 9936696 (Version 1)
Quarter: 2014Q1

REPORT INFORMATION
  Report Type: Spontaneous
  Country: US (occurrence: US)
  Receive Date: 20140228
  Receipt Date: 20140228
  Transmission Date: 20141002
  Serious: Yes (Other)
  Sender: FDA-Public Use
  Company Number: US-SA-2014SA004786

PATIENT
  Age: 62 Year
  Sex: Male
  Weight: 77.11 kg

DRUGS (6)
  1. DIABETA [Suspect]
     Indication: TYPE 2 DIABETES MELLITUS
     Route: 065
  2. METFORMIN [Suspect]
     Indication: DIABETES MELLITUS
     Route: 065
     Dates: start: 201311
  3. PRAVASTATIN SODIUM [Concomitant]
     Indication: BLOOD CHOLESTEROL
     Route: 065
     Dates: start: 201311
  4. LEVOTHYROXINE [Concomitant]
     Indication: THYROID DISORDER
     Route: 065
     Dates: start: 201311
  5. METOPROLOL TARTRATE [Concomitant]
     Indication: CARDIAC DISORDER
     Route: 065
     Dates: start: 201311
  6. GLYBURIDE [Concomitant]
     Indication: DIABETES MELLITUS
     Route: 065
     Dates: start: 201311

REACTIONS (2)
  - Blood glucose increased [Unknown]
  - Glycosylated haemoglobin increased [Unknown]
